FAERS Safety Report 13125077 (Version 1)
Quarter: 2017Q1

REPORT INFORMATION
  Report Type: Report from Study
  Country: US (occurrence: US)
  Receive Date: 20170118
  Receipt Date: 20170118
  Transmission Date: 20170428
  Serious: Yes (Hospitalization, Other)
  Sender: FDA-Public Use
  Company Number: US-TEVA-730978USA

PATIENT
  Age: 13 Year
  Sex: Female

DRUGS (18)
  1. FLUDARABINE [Suspect]
     Active Substance: FLUDARABINE PHOSPHATE
     Indication: ACUTE MYELOID LEUKAEMIA
     Route: 065
  2. CYTARABINE. [Concomitant]
     Active Substance: CYTARABINE
  3. DECADRON [Concomitant]
     Active Substance: DEXAMETHASONE
  4. VALTREX [Concomitant]
     Active Substance: VALACYCLOVIR HYDROCHLORIDE
  5. GRANIX [Suspect]
     Active Substance: TBO-FILGRASTIM
     Indication: ACUTE MYELOID LEUKAEMIA
     Route: 065
  6. CYTOSINE ARABINOSIDE [Suspect]
     Active Substance: CYTARABINE
     Indication: ACUTE MYELOID LEUKAEMIA
     Route: 065
  7. APREPITANT. [Concomitant]
     Active Substance: APREPITANT
  8. SCOPOLAMINE [Concomitant]
     Active Substance: SCOPOLAMINE
  9. METHOTREXATE. [Suspect]
     Active Substance: METHOTREXATE
     Indication: ACUTE MYELOID LEUKAEMIA
     Route: 065
  10. COFARABINE [Concomitant]
  11. DAUNORUBICIN [Suspect]
     Active Substance: DAUNORUBICIN
     Indication: ACUTE MYELOID LEUKAEMIA
     Route: 065
  12. ZOFRAN [Concomitant]
     Active Substance: ONDANSETRON HYDROCHLORIDE
  13. CEFEPIME [Concomitant]
     Active Substance: CEFEPIME HYDROCHLORIDE
  14. MAGNESIUM OXIDE. [Concomitant]
     Active Substance: MAGNESIUM OXIDE
  15. CYTARABINE. [Suspect]
     Active Substance: CYTARABINE
     Indication: ACUTE MYELOID LEUKAEMIA
     Route: 065
  16. SPIRONOLACTONE. [Concomitant]
     Active Substance: SPIRONOLACTONE
  17. CASPOFUNGIN [Concomitant]
     Active Substance: CASPOFUNGIN
  18. NORETHINDRONE. [Concomitant]
     Active Substance: NORETHINDRONE

REACTIONS (17)
  - Herpes simplex [Recovered/Resolved]
  - Pyrexia [Recovered/Resolved]
  - Clostridium difficile infection [Unknown]
  - Pancreatitis [Unknown]
  - Electrocardiogram QT prolonged [Unknown]
  - Nausea [Unknown]
  - Enterococcal bacteraemia [Recovered/Resolved]
  - Mucosal inflammation [Unknown]
  - Cellulitis [Unknown]
  - Cellulitis [Unknown]
  - Vomiting [Unknown]
  - Mucosal inflammation [Recovered/Resolved]
  - Appendicitis [Recovered/Resolved]
  - Streptococcal bacteraemia [Recovered/Resolved]
  - Acute myeloid leukaemia [Unknown]
  - Acinetobacter bacteraemia [Recovered/Resolved]
  - Fungal infection [Unknown]

NARRATIVE: CASE EVENT DATE: 201603
